FAERS Safety Report 9456796 (Version 1)
Quarter: 2013Q3

REPORT INFORMATION
  Report Type: Spontaneous
  Country: NO (occurrence: NO)
  Receive Date: 20130813
  Receipt Date: 20130813
  Transmission Date: 20140515
  Serious: Yes (Hospitalization)
  Sender: FDA-Public Use
  Company Number: NO-AMGEN-NORSP2013056083

PATIENT
  Sex: Male

DRUGS (13)
  1. ENBREL [Suspect]
     Indication: PSORIATIC ARTHROPATHY
     Dosage: 25 MG, 2X/WEEK
     Route: 058
     Dates: start: 20130523, end: 20130530
  2. SERETIDE [Concomitant]
     Dosage: 2 DF, 2X/DAY
  3. ATROVENT [Concomitant]
     Dosage: 20 MICROGRAM, 2 X 4
  4. PREDNISOLON                        /00016201/ [Concomitant]
     Dosage: UNK
  5. CIPRALEX                           /01588501/ [Concomitant]
     Dosage: 5 MG, 1X/DAY
  6. ACLASTA [Concomitant]
     Dosage: 5 MG, UNK
  7. NYCOPLUS B-TOTAL                   /00228301/ [Concomitant]
     Dosage: UNK
  8. VALLERGAN [Concomitant]
     Dosage: 10 MG, 2X/DAY
  9. LEVAXIN [Concomitant]
     Dosage: 100 MICROGRAM X 6  AND 50 MICROGRAM X 1 PER WEEK
  10. FLUTIDE [Concomitant]
     Dosage: 125 MICROGRAM, 2 X 2
     Dates: end: 20130527
  11. ARICEPT [Concomitant]
     Dosage: 10 MG, 1X/DAY
  12. SOBRIL [Concomitant]
     Dosage: UNK
  13. SOMAC [Concomitant]
     Dosage: 40 MG, 1X/DAY

REACTIONS (1)
  - Grand mal convulsion [Recovered/Resolved]
